FAERS Safety Report 14700100 (Version 2)
Quarter: 2018Q2

REPORT INFORMATION
  Report Type: Spontaneous
  Country: US (occurrence: US)
  Receive Date: 20180330
  Receipt Date: 20180419
  Transmission Date: 20180711
  Serious: Yes (Hospitalization, Other)
  Sender: FDA-Public Use
  Company Number: US-ASTRAZENECA-2018SE38150

PATIENT
  Age: 74 Year
  Sex: Female
  Weight: 50.8 kg

DRUGS (2)
  1. TUDORZA PRESSAIR [Suspect]
     Active Substance: ACLIDINIUM BROMIDE
     Indication: CHRONIC OBSTRUCTIVE PULMONARY DISEASE
     Dosage: 400 MCG, 1 INHALATION, TWICE DAILY
     Route: 055
     Dates: start: 2013
  2. LISINOPRIL. [Suspect]
     Active Substance: LISINOPRIL
     Indication: HYPERTENSION
     Route: 048
     Dates: end: 201405

REACTIONS (16)
  - Device malfunction [Unknown]
  - Pneumonia [Recovered/Resolved]
  - Arthritis [Not Recovered/Not Resolved]
  - Intentional product misuse [Unknown]
  - Vomiting [Recovered/Resolved]
  - Blood pressure fluctuation [Unknown]
  - Upper limb fracture [Unknown]
  - Hypotension [Unknown]
  - Blood pressure increased [Unknown]
  - Fall [Unknown]
  - Loss of consciousness [Unknown]
  - Autonomic nervous system imbalance [Not Recovered/Not Resolved]
  - Dyspnoea [Not Recovered/Not Resolved]
  - Pelvic fracture [Unknown]
  - Dehydration [Recovered/Resolved]
  - Body height decreased [Unknown]

NARRATIVE: CASE EVENT DATE: 2014
